FAERS Safety Report 16464297 (Version 1)
Quarter: 2019Q3

REPORT INFORMATION
  Report Type: Spontaneous
  Country: US (occurrence: US)
  Receive Date: 20190620
  Receipt Date: 20190620
  Transmission Date: 20191004
  Serious: Yes (Other)
  Sender: FDA-Public Use
  Company Number: None

PATIENT
  Age: 30 Year
  Sex: Female
  Weight: 60.75 kg

DRUGS (3)
  1. QBREXZA [Suspect]
     Active Substance: GLYCOPYRRONIUM TOSYLATE
     Indication: HYPERHIDROSIS
     Route: 061
     Dates: start: 20190225, end: 20190620
  2. BLISOVI [Concomitant]
     Active Substance: ETHINYL ESTRADIOL\NORETHINDRONE ACETATE
  3. VALTREX [Concomitant]
     Active Substance: VALACYCLOVIR HYDROCHLORIDE

REACTIONS (7)
  - Oropharyngeal pain [None]
  - Vision blurred [None]
  - Dry mouth [None]
  - Urinary tract disorder [None]
  - Urticaria [None]
  - Headache [None]
  - Drug interaction [None]

NARRATIVE: CASE EVENT DATE: 20190618
